FAERS Safety Report 6148063-X (Version None)
Quarter: 2009Q2

REPORT INFORMATION
  Report Type: 
  Country: None (occurrence: None)
  Receive Date: 20090408
  Receipt Date: 20090330
  Transmission Date: 20091009
  Serious: Yes (Hospitalization)
  Sender: FDA-Public Use
  Company Number: B0558090A

PATIENT
  Sex: Female

DRUGS (6)
  1. AMOXICILLIN AND CLAVULANATE POTASSIUM [Suspect]
     Indication: URINARY TRACT INFECTION
     Dosage: 500MG TWICE PER DAY
     Route: 048
     Dates: start: 20060403, end: 20060410
  2. NIMESULIDE [Concomitant]
     Indication: ARTHRALGIA
     Dates: start: 20070101
  3. ELTROXIN [Concomitant]
     Indication: DRUG USE FOR UNKNOWN INDICATION
     Dosage: 25MCG PER DAY
     Route: 065
  4. NUSEAL ASPIRIN [Concomitant]
     Indication: DRUG USE FOR UNKNOWN INDICATION
     Route: 065
  5. INSULIN [Concomitant]
     Indication: DRUG USE FOR UNKNOWN INDICATION
     Route: 065
  6. ZESTRIL [Concomitant]
     Dosage: 25MG PER DAY

REACTIONS (12)
  - BILIARY CIRRHOSIS [None]
  - CHOLELITHIASIS [None]
  - CHROMATURIA [None]
  - DIABETES MELLITUS [None]
  - FAECES PALE [None]
  - HEPATITIS CHOLESTATIC [None]
  - JAUNDICE [None]
  - LIVER DISORDER [None]
  - LIVER INJURY [None]
  - MALAISE [None]
  - NAUSEA [None]
  - TYPE 1 DIABETES MELLITUS [None]
